FAERS Safety Report 12446520 (Version 1)
Quarter: 2016Q2

REPORT INFORMATION
  Report Type: Spontaneous
  Country: US (occurrence: None)
  Receive Date: 20160607
  Receipt Date: 20160607
  Transmission Date: 20160815
  Serious: No
  Sender: FDA-Public Use
  Company Number: None

PATIENT
  Age: 32 Year
  Sex: Male
  Weight: 72.58 kg

DRUGS (3)
  1. CREST PRO-HEALTH ADVANCED W/EXTRA DEEP CLEAN [Suspect]
     Active Substance: SODIUM FLUORIDE
     Route: 048
     Dates: start: 20160530, end: 20160531
  2. VITAMIN D [Concomitant]
     Active Substance: CHOLECALCIFEROL
  3. ZYRTEC [Concomitant]
     Active Substance: CETIRIZINE HYDROCHLORIDE

REACTIONS (1)
  - Hypogeusia [None]

NARRATIVE: CASE EVENT DATE: 20160530
